FAERS Safety Report 24210656 (Version 1)
Quarter: 2024Q3

REPORT INFORMATION
  Report Type: Spontaneous
  Country: US (occurrence: None)
  Receive Date: 20240813
  Receipt Date: 20240813
  Transmission Date: 20241017
  Serious: Yes (Life-Threatening)
  Sender: Public
  Company Number: None

PATIENT
  Age: 85 Year
  Sex: Female
  Weight: 57.15 kg

DRUGS (7)
  1. FLUTICASONE PROPIONATE AND SALMETEROL [Suspect]
     Active Substance: FLUTICASONE PROPIONATE\SALMETEROL XINAFOATE
     Indication: Chronic obstructive pulmonary disease
     Dosage: OTHER QUANTITY : 1 PUFF;?OTHER FREQUENCY : ONCE IN THE A.M.;?OTHER ROUTE : MOUTH IN HALE;?
     Route: 050
     Dates: start: 20240525, end: 20240601
  2. LEVOTHYROXINE SODIUM [Concomitant]
  3. TRELEGY ELLIPTA [Concomitant]
     Active Substance: FLUTICASONE FUROATE\UMECLIDINIUM BROMIDE\VILANTEROL TRIFENATATE
  4. One a Day Multivitamin 65+ [Concomitant]
  5. CRANBERRY FRUIT [Concomitant]
  6. Vegetarian glucosamine + MSM [Concomitant]
  7. Ultra B Stress Formula [Concomitant]

REACTIONS (4)
  - Upper respiratory tract infection [None]
  - Sinusitis [None]
  - Heart rate [None]
  - Hypertension [None]

NARRATIVE: CASE EVENT DATE: 20240601
